FAERS Safety Report 22188247 (Version 2)
Quarter: 2023Q2

REPORT INFORMATION
  Report Type: Report from Study
  Country: US (occurrence: US)
  Receive Date: 20230408
  Receipt Date: 20230506
  Transmission Date: 20230721
  Serious: Yes (Other)
  Sender: FDA-Public Use
  Company Number: US-002147023-NVSC2023US078699

PATIENT
  Age: 51 Year
  Sex: Female

DRUGS (1)
  1. ENTRESTO [Suspect]
     Active Substance: SACUBITRIL\VALSARTAN
     Indication: Product used for unknown indication
     Dosage: 49 MG OF SACUBITRIL, 51 MG OF VALSARTAN (1 DOSAGE FORM), BID
     Route: 065
     Dates: start: 20230306

REACTIONS (4)
  - Cardiac failure [Unknown]
  - Somnolence [Unknown]
  - Weight fluctuation [Unknown]
  - Fatigue [Unknown]

NARRATIVE: CASE EVENT DATE: 20230306
